FAERS Safety Report 5775676-7 (Version None)
Quarter: 2008Q2

REPORT INFORMATION
  Report Type: 
  Country: None (occurrence: None)
  Receive Date: 20080617
  Receipt Date: 20080605
  Transmission Date: 20081010
  Serious: Yes (Disabling)
  Sender: FDA-Public Use
  Company Number: FR-WYE-H03718908

PATIENT
  Age: 78 Year
  Sex: Female

DRUGS (6)
  1. PANTOPRAZOLE SODIUM [Suspect]
     Indication: ABDOMINAL PAIN UPPER
     Route: 048
     Dates: start: 20070713, end: 20071210
  2. CALCIDOSE [Concomitant]
     Indication: OSTEOPOROSIS
     Route: 048
  3. SOLUPRED [Suspect]
     Indication: BRONCHITIS CHRONIC
     Route: 048
  4. CORTICOSTEROID NOS [Concomitant]
     Indication: PNEUMONIA
     Dosage: UNSPECIFIED
     Dates: start: 20070701, end: 20070712
  5. CORTICOSTEROID NOS [Concomitant]
     Dosage: ^PROGRESSIVELY DECREASED^
     Dates: start: 20070713
  6. IRBESARTAN [Concomitant]
     Indication: HYPERTENSION
     Route: 048

REACTIONS (1)
  - DRUG ERUPTION [None]
